FAERS Safety Report 7249201-8 (Version None)
Quarter: 2011Q1

REPORT INFORMATION
  Report Type: 
  Country: None (occurrence: None)
  Receive Date: 20110128
  Receipt Date: 20101203
  Transmission Date: 20110831
  Serious: Yes (Life-Threatening, Hospitalization)
  Sender: FDA-Public Use
  Company Number: IT-BAYER-201047109GPV

PATIENT
  Sex: Male

DRUGS (4)
  1. LANOXIN [Concomitant]
  2. ASPIRIN [Suspect]
     Indication: THROMBOSIS PROPHYLAXIS
     Route: 048
     Dates: start: 20001107, end: 20100615
  3. LASIX [Concomitant]
  4. ENAPREN [Concomitant]

REACTIONS (2)
  - HEMIPARESIS [None]
  - THALAMUS HAEMORRHAGE [None]
